FAERS Safety Report 19134391 (Version 1)
Quarter: 2021Q2

REPORT INFORMATION
  Report Type: Spontaneous
  Country: US (occurrence: US)
  Receive Date: 20210414
  Receipt Date: 20210414
  Transmission Date: 20210717
  Serious: No
  Sender: FDA-Public Use
  Company Number: US-BION-008958

PATIENT
  Age: 70 Year
  Sex: Female
  Weight: 124.74 kg

DRUGS (1)
  1. ALEVE [Suspect]
     Active Substance: NAPROXEN SODIUM
     Indication: ARTHRALGIA
     Dosage: 2 A DAY AS NEEDED

REACTIONS (2)
  - Abdominal discomfort [Unknown]
  - Irritable bowel syndrome [Unknown]
